FAERS Safety Report 8579059-6 (Version None)
Quarter: 2012Q3

REPORT INFORMATION
  Report Type: 
  Country: None (occurrence: None)
  Receive Date: 20120808
  Receipt Date: 20120802
  Transmission Date: 20120928
  Serious: Yes (Death)
  Sender: FDA-Public Use
  Company Number: US-CELGENEUS-163-21880-12080329

PATIENT
  Sex: Male
  Weight: 82.4 kg

DRUGS (27)
  1. CARFILZOMIB [Suspect]
     Indication: MULTIPLE MYELOMA
     Route: 065
     Dates: start: 20110815
  2. CARFILZOMIB [Suspect]
     Route: 065
     Dates: start: 20111205
  3. DEXAMETHASONE [Suspect]
     Route: 065
     Dates: start: 20120402, end: 20120611
  4. LASIX [Concomitant]
  5. CARFILZOMIB [Suspect]
     Route: 065
     Dates: start: 20110822
  6. DEXAMETHASONE [Suspect]
     Indication: MULTIPLE MYELOMA
     Route: 065
     Dates: start: 20110815
  7. DEXAMETHASONE [Suspect]
     Route: 065
     Dates: start: 20111128
  8. COMPAZINE [Concomitant]
     Dosage: 60 MILLIGRAM
     Route: 065
     Dates: start: 20110815
  9. ZOMETA [Concomitant]
     Indication: PROPHYLAXIS
     Dosage: 4 MILLIGRAM
     Route: 041
     Dates: start: 20110318
  10. REVLIMID [Suspect]
     Indication: MULTIPLE MYELOMA
     Dosage: 25 MILLIGRAM
     Route: 048
     Dates: start: 20110815, end: 20120709
  11. CARVEDILOL [Concomitant]
     Indication: ATRIAL FIBRILLATION
     Dosage: 3.125 MILLIGRAM
     Route: 048
     Dates: start: 20110210
  12. METFORMIN HYDROCHLORIDE [Concomitant]
     Indication: TYPE 2 DIABETES MELLITUS
     Dosage: 2000 MILLIGRAM
     Route: 048
     Dates: start: 20101123
  13. WARFARIN SODIUM [Concomitant]
     Indication: ANTIPLATELET THERAPY
  14. CARFILZOMIB [Suspect]
     Route: 065
     Dates: start: 20120227
  15. CARFILZOMIB [Suspect]
     Route: 065
     Dates: start: 20120423, end: 20120730
  16. DEXAMETHASONE [Suspect]
     Route: 065
     Dates: start: 20120326
  17. CALCIUM [Concomitant]
     Dosage: 1200 MILLIGRAM
     Route: 048
     Dates: start: 20111220
  18. OMEPRAZOLE [Concomitant]
     Indication: DRUG THERAPY
     Dosage: 20 MILLIGRAM
     Route: 048
     Dates: start: 20110813
  19. VALACYCLOVIR HYDROCHLORIDE [Concomitant]
     Indication: ANTIVIRAL PROPHYLAXIS
     Dosage: 500 MILLIGRAM
     Route: 048
     Dates: start: 20110813
  20. VICODIN [Concomitant]
     Indication: BACK PAIN
     Dosage: 5/500MG
     Route: 048
     Dates: start: 20110815
  21. DEXAMETHASONE [Suspect]
     Route: 065
     Dates: start: 20111205
  22. WARFARIN SODIUM [Concomitant]
     Indication: ANTICOAGULANT THERAPY
     Dosage: 10 MILLIGRAM
     Route: 048
     Dates: start: 20110608
  23. CARFILZOMIB [Suspect]
     Route: 065
     Dates: start: 20110912
  24. CARVEDILOL [Concomitant]
     Indication: HYPERTENSION
  25. POTASSIUM CHLORIDE [Concomitant]
     Indication: PROPHYLAXIS
     Dosage: 20 MILLIEQUIVALENTS
     Route: 048
     Dates: start: 20120130
  26. CARFILZOMIB [Suspect]
     Route: 065
     Dates: start: 20120103
  27. LASIX [Concomitant]
     Dosage: 40 MILLIGRAM
     Route: 048
     Dates: start: 20120130

REACTIONS (1)
  - MYOCARDIAL INFARCTION [None]
